FAERS Safety Report 10869209 (Version 7)
Quarter: 2015Q2

REPORT INFORMATION
  Report Type: Spontaneous
  Country: US (occurrence: US)
  Receive Date: 20150225
  Receipt Date: 20150605
  Transmission Date: 20150821
  Serious: No
  Sender: FDA-Public Use
  Company Number: US-009507513-1502USA010147

PATIENT
  Age: 30 Year
  Sex: Female
  Weight: 59.41 kg

DRUGS (5)
  1. PRAZOSIN [Concomitant]
     Active Substance: PRAZOSIN
  2. PROZAC [Concomitant]
     Active Substance: FLUOXETINE HYDROCHLORIDE
  3. NEXPLANON [Suspect]
     Active Substance: ETONOGESTREL
     Indication: CONTRACEPTION
     Dosage: 1 DF, UNK
     Route: 059
     Dates: start: 201306
  4. WELLBUTRIN [Concomitant]
     Active Substance: BUPROPION HYDROCHLORIDE
  5. PERPHENAZINE. [Concomitant]
     Active Substance: PERPHENAZINE

REACTIONS (3)
  - Medical device complication [Not Recovered/Not Resolved]
  - Unintended pregnancy [Unknown]
  - Drug level [Unknown]

NARRATIVE: CASE EVENT DATE: 20141231
